FAERS Safety Report 9578357 (Version 1)
Quarter: 2013Q4

REPORT INFORMATION
  Report Type: Spontaneous
  Country: US (occurrence: US)
  Receive Date: 20131001
  Receipt Date: 20131001
  Transmission Date: 20140711
  Serious: No
  Sender: FDA-Public Use
  Company Number: US-AMGEN-USASP2013012422

PATIENT
  Age: 61 Year
  Sex: Female

DRUGS (6)
  1. ENBREL [Suspect]
     Indication: PRODUCT USED FOR UNKNOWN INDICATION
     Dosage: 50 MG, QWK
     Route: 058
  2. FOLIC ACID [Concomitant]
     Dosage: UNK
  3. METHOTREXATE [Concomitant]
     Dosage: 2.5 MG, UNK
  4. HYZAAR [Concomitant]
     Dosage: 50-12.5
  5. LEVOXYL [Concomitant]
     Dosage: 25 MUG, UNK
  6. POTASSIUM [Concomitant]
     Dosage: 99 MG, UNK

REACTIONS (2)
  - Rash erythematous [Unknown]
  - Rash pruritic [Unknown]
